FAERS Safety Report 9264955 (Version 1)
Quarter: 2013Q2

REPORT INFORMATION
  Report Type: Spontaneous
  Country: US (occurrence: None)
  Receive Date: 20130430
  Receipt Date: 20130430
  Transmission Date: 20140414
  Serious: No
  Sender: FDA-Public Use
  Company Number: None

PATIENT
  Age: 53 Year
  Sex: Male
  Weight: 112.95 kg

DRUGS (1)
  1. DIVALPROEX [Suspect]
     Indication: SCHIZOAFFECTIVE DISORDER
     Dosage: 4 TABS.
     Route: 048

REACTIONS (4)
  - Abdominal discomfort [None]
  - Product substitution issue [None]
  - Product odour abnormal [None]
  - Eructation [None]
